FAERS Safety Report 7949504-5 (Version None)
Quarter: 2011Q4

REPORT INFORMATION
  Report Type: 
  Country: None (occurrence: None)
  Receive Date: 20111130
  Receipt Date: 20111118
  Transmission Date: 20120403
  Serious: Yes (Hospitalization)
  Sender: FDA-Public Use
  Company Number: US-BAYER-200935882NA

PATIENT
  Age: 44 Year
  Sex: Female
  Weight: 86.168 kg

DRUGS (10)
  1. YASMIN [Suspect]
     Indication: PREMENSTRUAL SYNDROME
  2. LEVOTHYROXINE SODIUM [Concomitant]
     Indication: HYPOTHYROIDISM
     Dosage: UNK UNK, QD
     Dates: start: 20070101
  3. NAPROXEN [Concomitant]
     Dosage: 220 MG, PRN
  4. YASMIN [Suspect]
     Indication: CONTRACEPTION
     Dosage: UNK UNK, UNK
     Route: 048
     Dates: start: 20060601, end: 20070701
  5. ATIVAN [Concomitant]
     Dosage: 0.5 MG, QD
  6. LUVOX [Concomitant]
     Dosage: 100 MG, HS
  7. MINOCYCLINE HCL [Concomitant]
     Dates: start: 20040101, end: 20070615
  8. ZANTAC [Concomitant]
  9. IBUPROFEN [Concomitant]
     Indication: HEADACHE
  10. CELEXA [Concomitant]
     Dosage: 20 MG, QD

REACTIONS (3)
  - CHOLECYSTITIS ACUTE [None]
  - BILIARY COLIC [None]
  - CHOLECYSTITIS INFECTIVE [None]
